FAERS Safety Report 15065028 (Version 1)
Quarter: 2018Q2

REPORT INFORMATION
  Report Type: Spontaneous
  Country: US (occurrence: US)
  Receive Date: 20180626
  Receipt Date: 20180626
  Transmission Date: 20180711
  Serious: Yes (Hospitalization, Other)
  Sender: FDA-Public Use
  Company Number: US-ACCORD-068700

PATIENT
  Age: 45 Year
  Sex: Female
  Weight: 88.45 kg

DRUGS (2)
  1. JANUVIA [Suspect]
     Active Substance: SITAGLIPTIN PHOSPHATE
     Indication: TYPE 2 DIABETES MELLITUS
     Dosage: STRENGTH: 100 MG
     Dates: end: 201805
  2. GLIMEPIRIDE ACCORD [Suspect]
     Active Substance: GLIMEPIRIDE
     Indication: TYPE 2 DIABETES MELLITUS
     Dosage: STRENGTH: 2 MG AND THEN INCREASED TO 4 MG
     Route: 048
     Dates: end: 20180601

REACTIONS (5)
  - Blood glucose decreased [Unknown]
  - Alopecia [Not Recovered/Not Resolved]
  - Condition aggravated [Unknown]
  - Pyrexia [Unknown]
  - Viral infection [Unknown]

NARRATIVE: CASE EVENT DATE: 20180601
